FAERS Safety Report 25212271 (Version 1)
Quarter: 2025Q2

REPORT INFORMATION
  Report Type: Spontaneous
  Country: US (occurrence: US)
  Receive Date: 20250418
  Receipt Date: 20250418
  Transmission Date: 20250717
  Serious: Yes (Life-Threatening, Other)
  Sender: ENDO
  Company Number: US-ENDO USA, INC.-2025-001081

PATIENT
  Age: 53 Year
  Sex: Male

DRUGS (1)
  1. TESTOSTERONE [Suspect]
     Active Substance: TESTOSTERONE
     Indication: Hypogonadism
     Route: 065

REACTIONS (2)
  - Hepatic adenoma [Recovering/Resolving]
  - Internal haemorrhage [Recovered/Resolved]
